FAERS Safety Report 5074026-1 (Version None)
Quarter: 2006Q3

REPORT INFORMATION
  Report Type: 
  Country: None (occurrence: None)
  Receive Date: 20060808
  Receipt Date: 20060314
  Transmission Date: 20061208
  Serious: Yes (Death, Hospitalization)
  Sender: FDA-Public Use
  Company Number: US-AMGEN-KDL172691

PATIENT
  Sex: Male

DRUGS (4)
  1. PROCRIT [Suspect]
     Indication: ANAEMIA OF MALIGNANT DISEASE
     Dates: start: 20051110, end: 20051130
  2. GEMZAR [Concomitant]
     Route: 042
     Dates: start: 20050101, end: 20050101
  3. ALBUMIN (HUMAN) [Concomitant]
     Dates: start: 20050101, end: 20050101
  4. LEVAQUIN [Concomitant]
     Dates: start: 20050101, end: 20050101

REACTIONS (2)
  - LUNG NEOPLASM MALIGNANT [None]
  - MALIGNANT NEOPLASM PROGRESSION [None]
